FAERS Safety Report 12779429 (Version 3)
Quarter: 2016Q4

REPORT INFORMATION
  Report Type: Spontaneous
  Country: JP (occurrence: JP)
  Receive Date: 20160926
  Receipt Date: 20161226
  Transmission Date: 20170207
  Serious: Yes (Congenital Anomaly, Other)
  Sender: FDA-Public Use
  Company Number: PHJP2016JP027068

PATIENT
  Age: 43 Year
  Sex: Female

DRUGS (1)
  1. NEORAL [Suspect]
     Active Substance: CYCLOSPORINE
     Indication: NEPHROTIC SYNDROME
     Dosage: UNK
     Route: 048

REACTIONS (5)
  - Respiratory paralysis [Unknown]
  - Muscular weakness [Unknown]
  - Dysphagia [Unknown]
  - Respiratory muscle weakness [Unknown]
  - Guillain-Barre syndrome [Unknown]
